FAERS Safety Report 8544818-2 (Version None)
Quarter: 2012Q3

REPORT INFORMATION
  Report Type: 
  Country: None (occurrence: None)
  Receive Date: 20120727
  Receipt Date: 20120713
  Transmission Date: 20120928
  Serious: Yes (Hospitalization, Other)
  Sender: FDA-Public Use
  Company Number: GB-ROCHE-1090801

PATIENT
  Sex: Female
  Weight: 62.2 kg

DRUGS (12)
  1. RANIBIZUMAB [Suspect]
     Route: 050
     Dates: start: 20120601
  2. CARBOCISTEINE [Concomitant]
     Dates: start: 20120713
  3. RANIBIZUMAB [Suspect]
     Indication: PRODUCT USED FOR UNKNOWN INDICATION
     Route: 050
     Dates: start: 20110729
  4. RANIBIZUMAB [Suspect]
     Route: 050
     Dates: start: 20120713
  5. DILTIAZEM [Concomitant]
  6. ASPIRIN [Concomitant]
  7. ATORVASTATIN [Concomitant]
  8. DIGOXIN [Concomitant]
  9. RHUS TOXICODENDRON [Concomitant]
  10. CETIRIZINE HYDROCHLORIDE [Concomitant]
     Dates: start: 20120713
  11. AMLODIPINE [Concomitant]
  12. CALCIFEROL [Concomitant]

REACTIONS (2)
  - TRANSIENT ISCHAEMIC ATTACK [None]
  - CAROTID ARTERY OCCLUSION [None]
